FAERS Safety Report 6360140-7 (Version None)
Quarter: 2009Q3

REPORT INFORMATION
  Report Type: 
  Country: None (occurrence: None)
  Receive Date: 20090917
  Receipt Date: 20090909
  Transmission Date: 20100115
  Serious: No
  Sender: FDA-Public Use
  Company Number: QA-AVENTIS-200920277GDDC

PATIENT
  Sex: Male

DRUGS (1)
  1. ARAVA [Suspect]

REACTIONS (1)
  - DRUG EXPOSURE DURING PREGNANCY [None]
